FAERS Safety Report 23560763 (Version 1)
Quarter: 2024Q1

REPORT INFORMATION
  Report Type: Report from Study
  Country: JP (occurrence: None)
  Receive Date: 20240223
  Receipt Date: 20240223
  Transmission Date: 20240410
  Serious: Yes (Life-Threatening, Hospitalization)
  Sender: FDA-Public Use
  Company Number: 2024A044433

PATIENT
  Age: 65 Year
  Sex: Female
  Weight: 53 kg

DRUGS (10)
  1. CALQUENCE [Suspect]
     Active Substance: ACALABRUTINIB
     Indication: Chronic lymphocytic leukaemia
     Route: 048
     Dates: start: 20230308, end: 20230512
  2. GAZYVA [Suspect]
     Active Substance: OBINUTUZUMAB
     Dosage: 100 MG NUMBER OF SEPARATE DOSAGES UNKNOWN
     Dates: start: 20230412, end: 20230412
  3. GAZYVA [Suspect]
     Active Substance: OBINUTUZUMAB
     Dosage: 900 MG NUMBER OF SEPARATE DOSAGES UNKNOWN
     Dates: start: 20230413, end: 20230413
  4. GAZYVA [Suspect]
     Active Substance: OBINUTUZUMAB
     Dosage: 1000 MG NUMBER OF SEPARATE DOSAGES UNKNOWN
     Dates: start: 20230419, end: 20230419
  5. GAZYVA [Suspect]
     Active Substance: OBINUTUZUMAB
     Dosage: 1000 MG NUMBER OF SEPARATE DOSAGES UNKNOWN
     Dates: start: 20230428, end: 20230428
  6. GAZYVA [Suspect]
     Active Substance: OBINUTUZUMAB
     Dosage: 1000 MG NUMBER OF SEPARATE DOSAGES UNKNOWN
     Dates: start: 20230512, end: 20230512
  7. ACYCLOVIR [Suspect]
     Active Substance: ACYCLOVIR
     Indication: Infection prophylaxis
     Dosage: NUMBER OF SEPARATE DOSAGES UNKNOWN
     Route: 048
     Dates: start: 20230308
  8. FEBUXOSTAT [Concomitant]
     Active Substance: FEBUXOSTAT
     Indication: Prophylaxis
     Dosage: NUMBER OF SEPARATE DOSAGES UNKNOWN
     Route: 048
     Dates: start: 20230307, end: 20230313
  9. SULFAMETHOXAZOLE\TRIMETHOPRIM [Concomitant]
     Active Substance: SULFAMETHOXAZOLE\TRIMETHOPRIM
     Indication: Infection prophylaxis
     Dosage: NUMBER OF SEPARATE DOSAGES UNKNOWN
     Route: 048
     Dates: start: 20230412
  10. LEVOFLOXACIN HEMIHYDRATE [Concomitant]
     Active Substance: LEVOFLOXACIN
     Indication: Infection prophylaxis
     Dosage: NUMBER OF SEPARATE DOSAGES UNKNOWN
     Route: 048
     Dates: start: 20230425, end: 20230501

REACTIONS (4)
  - Aplastic anaemia [Recovered/Resolved]
  - Liver disorder [Recovering/Resolving]
  - Chills [Recovered/Resolved]
  - Pyrexia [Recovered/Resolved]

NARRATIVE: CASE EVENT DATE: 20230403
